FAERS Safety Report 14638565 (Version 12)
Quarter: 2018Q3

REPORT INFORMATION
  Report Type: Report from Study
  Country: CA (occurrence: CA)
  Receive Date: 20180314
  Receipt Date: 20180928
  Transmission Date: 20181010
  Serious: Yes (Other)
  Sender: FDA-Public Use
  Company Number: CA-HLSUS-2018-CA-000014

PATIENT
  Age: 20 Year
  Sex: Female
  Weight: 55 kg

DRUGS (1)
  1. CLOZARIL [Suspect]
     Active Substance: CLOZAPINE
     Route: 048
     Dates: start: 20171122

REACTIONS (9)
  - Accidental exposure to product [Unknown]
  - Electrocardiogram PR shortened [Unknown]
  - Sinus tachycardia [Unknown]
  - Wolff-Parkinson-White syndrome [Unknown]
  - Electrocardiogram QT prolonged [Recovered/Resolved]
  - Right ventricular hypertrophy [Unknown]
  - Electrocardiogram ST-T segment abnormal [Unknown]
  - Cardiac septal hypertrophy [Unknown]
  - Conduction disorder [Unknown]

NARRATIVE: CASE EVENT DATE: 2017
